FAERS Safety Report 5235894-3 (Version None)
Quarter: 2007Q1

REPORT INFORMATION
  Report Type: 
  Country: None (occurrence: None)
  Receive Date: 20061208
  Receipt Date: 20060626
  Transmission Date: 20070707
  Serious: Yes (Other)
  Sender: FDA-Public Use
  Company Number: 2006UW13444

PATIENT
  Age: 77 Year
  Sex: Female
  Weight: 47.627 kg

DRUGS (6)
  1. CRESTOR [Suspect]
     Indication: BLOOD CHOLESTEROL INCREASED
     Dosage: 5 MG QD PO
     Route: 048
     Dates: start: 20060501
  2. ACTONEL [Concomitant]
  3. THYROID TAB [Concomitant]
  4. ULTRAM [Concomitant]
  5. ACIPHEX [Concomitant]
  6. CALCIUM [Concomitant]

REACTIONS (2)
  - MYALGIA [None]
  - NAIL DISORDER [None]
